FAERS Safety Report 18185156 (Version 1)
Quarter: 2020Q3

REPORT INFORMATION
  Report Type: Spontaneous
  Country: US (occurrence: US)
  Receive Date: 20200824
  Receipt Date: 20200824
  Transmission Date: 20201103
  Serious: Yes (Hospitalization)
  Sender: FDA-Public Use
  Company Number: US-B.I. PHARMACEUTICALS,INC./RIDGEFIELD-2020-US-042591

PATIENT
  Age: 79 Year
  Sex: Female

DRUGS (1)
  1. PRADAXA [Suspect]
     Active Substance: DABIGATRAN ETEXILATE MESYLATE
     Indication: ATRIAL FIBRILLATION
     Dosage: 150MG BID
     Route: 065
     Dates: start: 2010

REACTIONS (5)
  - Knee arthroplasty [Recovered/Resolved]
  - Constipation [Unknown]
  - Insomnia [Unknown]
  - Knee arthroplasty [Recovered/Resolved with Sequelae]
  - Anxiety [Unknown]

NARRATIVE: CASE EVENT DATE: 201902
